FAERS Safety Report 16281003 (Version 2)
Quarter: 2019Q2

REPORT INFORMATION
  Report Type: Spontaneous
  Country: AU (occurrence: AU)
  Receive Date: 20190507
  Receipt Date: 20190610
  Transmission Date: 20190711
  Serious: Yes (Other)
  Sender: FDA-Public Use
  Company Number: AU-JNJFOC-20190444910

PATIENT
  Sex: Male

DRUGS (3)
  1. DARATUMUMAB [Suspect]
     Active Substance: DARATUMUMAB
     Indication: PLASMA CELL MYELOMA
     Route: 065
  2. KYPROLIS [Suspect]
     Active Substance: CARFILZOMIB
     Indication: PLASMA CELL MYELOMA
     Route: 065
  3. DEXAMETHASONE. [Suspect]
     Active Substance: DEXAMETHASONE
     Indication: PLASMA CELL MYELOMA
     Route: 065

REACTIONS (14)
  - Cardiac disorder [Recovered/Resolved]
  - Anger [Unknown]
  - Diarrhoea [Unknown]
  - Dysphonia [Recovered/Resolved]
  - Product use issue [Unknown]
  - Bronchitis [Unknown]
  - Urinary incontinence [Unknown]
  - Dyspnoea [Unknown]
  - Pneumonia [Unknown]
  - Vomiting [Unknown]
  - Irritability [Unknown]
  - Emotional disorder [Unknown]
  - Off label use [Unknown]
  - Vision blurred [Unknown]
